FAERS Safety Report 9607970 (Version 1)
Quarter: 2013Q4

REPORT INFORMATION
  Report Type: Spontaneous
  Country: US (occurrence: US)
  Receive Date: 20131009
  Receipt Date: 20131009
  Transmission Date: 20140711
  Serious: No
  Sender: FDA-Public Use
  Company Number: US-PURDUE-USA-2012-0094229

PATIENT
  Sex: Female

DRUGS (2)
  1. BUTRANS [Suspect]
     Indication: BACK PAIN
     Dosage: UNK
     Route: 062
     Dates: start: 2010, end: 2011
  2. BUTRANS [Suspect]
     Dosage: 15 MCG, (USING 5MCG AND 10MCG AT SAME TIME, 1/WEEKLY)
     Route: 062
     Dates: start: 2011

REACTIONS (2)
  - Drug ineffective [Unknown]
  - Product adhesion issue [Unknown]
